FAERS Safety Report 19744472 (Version 1)
Quarter: 2021Q3

REPORT INFORMATION
  Report Type: Spontaneous
  Country: CN (occurrence: CN)
  Receive Date: 20210825
  Receipt Date: 20210825
  Transmission Date: 20211014
  Serious: Yes (Other)
  Sender: FDA-Public Use
  Company Number: CN-BRACCO-2021CN03621

PATIENT
  Age: 77 Year
  Sex: Male

DRUGS (1)
  1. MULTIHANCE [Suspect]
     Active Substance: GADOBENATE DIMEGLUMINE
     Indication: MAGNETIC RESONANCE IMAGING ABDOMINAL
     Dosage: 10 ML, SINGLE
     Route: 042
     Dates: start: 20210819, end: 20210819

REACTIONS (6)
  - Unresponsive to stimuli [Unknown]
  - Heart rate increased [Unknown]
  - Syncope [Unknown]
  - Hyperhidrosis [Unknown]
  - Pulse abnormal [Unknown]
  - Hypopnoea [Unknown]

NARRATIVE: CASE EVENT DATE: 20210819
